FAERS Safety Report 5899305-7 (Version None)
Quarter: 2008Q3

REPORT INFORMATION
  Report Type: 
  Country: None (occurrence: None)
  Receive Date: 20080909
  Receipt Date: 20071016
  Transmission Date: 20090109
  Serious: Yes (Other)
  Sender: FDA-Public Use
  Company Number: US-WYE-H00740307

PATIENT
  Age: 67 Year
  Sex: Female
  Weight: 58.11 kg

DRUGS (2)
  1. ADVIL [Suspect]
     Indication: BACK PAIN
     Dosage: 1 CAPSULE X 1, ORAL
     Route: 048
     Dates: start: 20070101, end: 20070101
  2. BUSPIRONE HCL [Concomitant]

REACTIONS (2)
  - FEELING ABNORMAL [None]
  - INFLUENZA LIKE ILLNESS [None]
